FAERS Safety Report 7228092 (Version 3)
Quarter: 2015Q2

REPORT INFORMATION
  Report Type: Spontaneous
  Country: US (occurrence: US)
  Receive Date: 20091222
  Receipt Date: 20150409
  Transmission Date: 20150821
  Serious: No
  Sender: FDA-Public Use
  Company Number: US-ASTRAZENECA-2009UW21744

PATIENT
  Age: 91 Year
  Sex: Female
  Weight: 59.9 kg

DRUGS (10)
  1. FISH OIL [Concomitant]
     Active Substance: FISH OIL
  2. CRESTOR [Suspect]
     Active Substance: ROSUVASTATIN CALCIUM
     Indication: BLOOD CHOLESTEROL INCREASED
     Route: 048
  3. ATENOLOL. [Suspect]
     Active Substance: ATENOLOL
     Route: 048
  4. XARELTO [Concomitant]
     Active Substance: RIVAROXABAN
     Indication: ATRIAL FIBRILLATION
     Dosage: TAKES 1/2 TABLET, DAILY
     Route: 048
     Dates: start: 201411
  5. WOMENS HEALTH GUMMY VITAMINS [Concomitant]
  6. CINNAMON. [Concomitant]
     Active Substance: CINNAMON
  7. XARELTO [Concomitant]
     Active Substance: RIVAROXABAN
     Indication: HAEMORRHAGE
     Dosage: TAKES 1/2 TABLET, DAILY
     Route: 048
     Dates: start: 201411
  8. CRESTOR [Suspect]
     Active Substance: ROSUVASTATIN CALCIUM
     Indication: BLOOD CHOLESTEROL INCREASED
     Route: 048
     Dates: start: 2013
  9. DIGOXIN. [Concomitant]
     Active Substance: DIGOXIN
     Indication: HEART RATE IRREGULAR
     Route: 048
     Dates: start: 2011
  10. VITAMIN B12 [Concomitant]
     Active Substance: CYANOCOBALAMIN

REACTIONS (10)
  - Sluggishness [Unknown]
  - Lethargy [None]
  - Drug dose omission [Unknown]
  - Intentional product misuse [Unknown]
  - Influenza [Unknown]
  - Stupor [Unknown]
  - Muscular weakness [Unknown]
  - Dizziness [Unknown]
  - Feeling abnormal [Unknown]
  - Rhinorrhoea [Unknown]

NARRATIVE: CASE EVENT DATE: 2013
